FAERS Safety Report 5016000-7 (Version None)
Quarter: 2006Q2

REPORT INFORMATION
  Report Type: 
  Country: None (occurrence: None)
  Receive Date: 20060531
  Receipt Date: 20060531
  Transmission Date: 20061013
  Serious: Yes (Life-Threatening, Other)
  Sender: FDA-Public Use
  Company Number: None

PATIENT
  Sex: Female
  Weight: 58.9676 kg

DRUGS (3)
  1. PROTOPIC [Suspect]
     Indication: VITILIGO
     Dosage: SPARINGLY TO AFFECTED AREAS DAILY IN PM TOP
     Route: 061
     Dates: start: 20030101, end: 20031101
  2. ELIDEL [Suspect]
     Indication: VITILIGO
     Dosage: SPARINGLY TO AFFECTED AREAS DAILY IN AM TOP
     Route: 061
     Dates: start: 20030101, end: 20031101
  3. TAZORAC CREAM [Concomitant]

REACTIONS (1)
  - BREAST CANCER [None]
